FAERS Safety Report 10070995 (Version 2)
Quarter: 2014Q2

REPORT INFORMATION
  Report Type: Spontaneous
  Country: BG (occurrence: BG)
  Receive Date: 20140410
  Receipt Date: 20140425
  Transmission Date: 20141212
  Serious: Yes (Other)
  Sender: FDA-Public Use
  Company Number: BG-BRISTOL-MYERS SQUIBB COMPANY-20608162

PATIENT
  Age: 51 Year
  Sex: Male

DRUGS (2)
  1. BYDUREON [Suspect]
     Indication: TYPE 2 DIABETES MELLITUS
     Dates: start: 20120601, end: 20120801
  2. METFORMIN [Concomitant]
     Indication: TYPE 2 DIABETES MELLITUS

REACTIONS (2)
  - Rash generalised [Recovered/Resolved]
  - Injection site reaction [Recovered/Resolved]
